FAERS Safety Report 15823918 (Version 1)
Quarter: 2019Q1

REPORT INFORMATION
  Report Type: Spontaneous
  Country: US (occurrence: US)
  Receive Date: 20190114
  Receipt Date: 20190114
  Transmission Date: 20190417
  Serious: Yes (Other)
  Sender: FDA-Public Use
  Company Number: US-ANIPHARMA-2019-US-000442

PATIENT
  Age: 77 Year
  Sex: Female
  Weight: 61.24 kg

DRUGS (4)
  1. METOPROLOL. [Concomitant]
     Active Substance: METOPROLOL
  2. FLECAINIDE ACETATE TABLETS 150 MG [Suspect]
     Active Substance: FLECAINIDE ACETATE
     Indication: HEART RATE IRREGULAR
     Dosage: 75MG TWICE DAILY
     Route: 048
     Dates: start: 2017
  3. ESCITALOPRAM [Concomitant]
     Active Substance: ESCITALOPRAM OXALATE
  4. PRAVASTATIN. [Concomitant]
     Active Substance: PRAVASTATIN

REACTIONS (3)
  - Atrial fibrillation [Unknown]
  - Pruritus [Not Recovered/Not Resolved]
  - Tachycardia [Unknown]

NARRATIVE: CASE EVENT DATE: 20181203
